FAERS Safety Report 4913078-3 (Version None)
Quarter: 2006Q1

REPORT INFORMATION
  Report Type: 
  Country: None (occurrence: None)
  Receive Date: 20060210
  Receipt Date: 20060201
  Transmission Date: 20060701
  Serious: Yes (Other)
  Sender: FDA-Public Use
  Company Number: 2006016307

PATIENT
  Age: 78 Year
  Sex: Female
  Weight: 52.1637 kg

DRUGS (3)
  1. LUBRIDERM DAILY MOISTURE WITH SPF 15 (OXYBENZONE, ETHYLHEXYL P-METHOXY [Suspect]
     Indication: DRY SKIN
     Dosage: UNSPECIFIED AMOUNT ONCE PER DAY, TOPICAL
     Route: 061
  2. GLYBURIDE [Concomitant]
  3. METFORMIN HCL [Concomitant]

REACTIONS (3)
  - BLISTER [None]
  - EYE SWELLING [None]
  - SWELLING [None]
